FAERS Safety Report 4347428-6 (Version None)
Quarter: 2004Q2

REPORT INFORMATION
  Report Type: 
  Country: None (occurrence: None)
  Receive Date: 20040422
  Receipt Date: 20040414
  Transmission Date: 20050107
  Serious: Yes (Life-Threatening)
  Sender: FDA-Public Use
  Company Number: 2004AP02201

PATIENT
  Age: 81 Year
  Sex: Female

DRUGS (5)
  1. OMEPRAZOLE [Suspect]
     Dosage: 20 MG DAILY PO
     Route: 048
  2. AMLODIPINE [Concomitant]
  3. GASMOTIN [Concomitant]
  4. CARBIDOPA AND LEVODOPA [Concomitant]
  5. PARLODEL [Concomitant]

REACTIONS (1)
  - RHABDOMYOLYSIS [None]
